FAERS Safety Report 18574859 (Version 1)
Quarter: 2020Q4

REPORT INFORMATION
  Report Type: Spontaneous
  Country: GB (occurrence: GB)
  Receive Date: 20201203
  Receipt Date: 20201203
  Transmission Date: 20210114
  Serious: Yes (Other)
  Sender: FDA-Public Use
  Company Number: GB-009507513-2011GBR016417

PATIENT
  Age: 89 Year
  Sex: Male
  Weight: 57 kg

DRUGS (12)
  1. BRINZOLAMIDE [Concomitant]
     Active Substance: BRINZOLAMIDE
     Dosage: USE TWICE DAILY IN BOTH EYES
     Route: 050
     Dates: start: 20190924
  2. MIRTAZAPINE. [Suspect]
     Active Substance: MIRTAZAPINE
     Dosage: 15 MILLIGRAM, QD, AT BEDTIME.
     Dates: start: 20201021
  3. NUTRITIONAL SUPPLEMENTS [Concomitant]
     Active Substance: DIETARY SUPPLEMENT
     Dosage: 3 DOSAGE FORM, QD, BOTTLE, FORTISIP COMPACT.
     Dates: start: 20201006
  4. NUTRITIONAL SUPPLEMENTS [Concomitant]
     Active Substance: DIETARY SUPPLEMENT
     Dosage: 120 MILLILITER, QD,CALOGEN EXTRA.
     Dates: start: 20201006
  5. DIGOXIN. [Concomitant]
     Active Substance: DIGOXIN
     Dosage: 1 DOSAGE FORM, QD,IN THE MORNING.
     Dates: start: 20200911
  6. CITALOPRAM [Concomitant]
     Active Substance: CITALOPRAM HYDROBROMIDE
     Dosage: 1 DOSAGE FORM, QD,WITH OMEPRAZOLE AS ALSO TAKING ASPIRIN.
     Dates: start: 20201104
  7. FOLIC ACID. [Concomitant]
     Active Substance: FOLIC ACID
     Dosage: 1 DOSAGE FORM, QD
     Dates: start: 20190924
  8. ASPIRIN. [Concomitant]
     Active Substance: ASPIRIN
     Dosage: 1 DOSAGE FORM, QD
     Dates: start: 20190924
  9. NITROFURANTOIN. [Concomitant]
     Active Substance: NITROFURANTOIN
     Dosage: 2 DOSAGE FORM, QD
     Dates: start: 20201029
  10. GANFORT [Concomitant]
     Active Substance: BIMATOPROST\TIMOLOL
     Dosage: 1 GTT DROPS, QD, BOTH EYES.
     Route: 050
     Dates: start: 20190924
  11. VENTOLIN [Concomitant]
     Active Substance: ALBUTEROL SULFATE
     Dosage: 2 DOSAGE FORM, PRN (AS NECESSARY)
     Route: 055
     Dates: start: 20190924, end: 20200914
  12. OMEPRAZOLE. [Concomitant]
     Active Substance: OMEPRAZOLE
     Dosage: 1 DOSAGE FORM, QD, WHILST TAKING CITALOPRAM
     Dates: start: 20201104

REACTIONS (1)
  - Fall [Recovered/Resolved]
